FAERS Safety Report 10150456 (Version 3)
Quarter: 2015Q1

REPORT INFORMATION
  Report Type: Report from Study
  Country: US (occurrence: US)
  Receive Date: 20140502
  Receipt Date: 20150320
  Transmission Date: 20150720
  Serious: Yes (Hospitalization)
  Sender: FDA-Public Use
  Company Number: US-TARO-2014P1003621

PATIENT
  Age: 86 Year
  Sex: Male
  Weight: 99.79 kg

DRUGS (13)
  1. ALLOPURINOL. [Concomitant]
     Active Substance: ALLOPURINOL
     Route: 048
     Dates: start: 2004
  2. BETIMOL [Concomitant]
     Active Substance: TIMOLOL
     Dosage: QD
     Route: 047
     Dates: start: 2008
  3. IMIQUIMOD CREAM 5% [Suspect]
     Active Substance: IMIQUIMOD
     Indication: ACTINIC KERATOSIS
     Dosage: BIW
     Route: 061
     Dates: start: 20140326, end: 20140713
  4. ASPIRIN. [Concomitant]
     Active Substance: ASPIRIN
     Route: 048
     Dates: start: 2004, end: 20140326
  5. VASERETIC [Concomitant]
     Active Substance: ENALAPRIL MALEATE\HYDROCHLOROTHIAZIDE
     Dosage: QD
     Route: 048
     Dates: start: 2004
  6. LASIX [Concomitant]
     Active Substance: FUROSEMIDE
     Route: 048
     Dates: start: 2012
  7. CARVEDILOL. [Concomitant]
     Active Substance: CARVEDILOL
     Route: 048
     Dates: start: 2004
  8. JALYN [Concomitant]
     Active Substance: DUTASTERIDE\TAMSULOSIN HYDROCHLORIDE
     Dosage: QD
     Route: 048
     Dates: start: 2004
  9. CENTRUM SILVER [Concomitant]
     Active Substance: VITAMINS
     Dosage: 1 QD
     Route: 048
     Dates: start: 2010
  10. METFORMIN [Concomitant]
     Active Substance: METFORMIN HYDROCHLORIDE
     Route: 048
     Dates: start: 2004
  11. SIMVASTATIN. [Concomitant]
     Active Substance: SIMVASTATIN
     Route: 048
     Dates: start: 2010
  12. VITAMIN D [Concomitant]
     Active Substance: CHOLECALCIFEROL
     Route: 048
     Dates: start: 2010
  13. POTASSIUM CHLORIDE. [Concomitant]
     Active Substance: POTASSIUM CHLORIDE
     Route: 048
     Dates: start: 2004

REACTIONS (4)
  - Fall [None]
  - Transient ischaemic attack [Recovered/Resolved]
  - Fractured coccyx [None]
  - Hypomagnesaemia [None]

NARRATIVE: CASE EVENT DATE: 20140326
